FAERS Safety Report 5638849-X (Version None)
Quarter: 2008Q1

REPORT INFORMATION
  Report Type: 
  Country: None (occurrence: None)
  Receive Date: 20080226
  Receipt Date: 20080215
  Transmission Date: 20080703
  Serious: Yes (Hospitalization, Disabling)
  Sender: FDA-Public Use
  Company Number: US-MERCK-0802USA02812

PATIENT
  Age: 58 Year
  Sex: Female
  Weight: 83 kg

DRUGS (5)
  1. FOSAMAX [Suspect]
     Indication: OSTEOPOROSIS
     Route: 048
     Dates: start: 19980101
  2. FOSAMAX [Suspect]
     Route: 048
  3. SYNTHROID [Concomitant]
     Indication: HYPOTHYROIDISM
     Route: 065
  4. CALCIUM (UNSPECIFIED) [Concomitant]
     Route: 065
  5. VITAMIN D (UNSPECIFIED) [Concomitant]
     Route: 065

REACTIONS (1)
  - FEMUR FRACTURE [None]
